FAERS Safety Report 16469386 (Version 1)
Quarter: 2019Q2

REPORT INFORMATION
  Report Type: Spontaneous
  Country: US (occurrence: US)
  Receive Date: 20190624
  Receipt Date: 20190624
  Transmission Date: 20190711
  Serious: No
  Sender: FDA-Public Use
  Company Number: US-SA-2019SA163848

PATIENT
  Age: 23 Year
  Sex: Female

DRUGS (1)
  1. DUPIXENT [Suspect]
     Active Substance: DUPILUMAB
     Dosage: UNK, UNK
     Dates: start: 201906

REACTIONS (4)
  - Eczema [Unknown]
  - Therapeutic response decreased [Unknown]
  - Scab [Unknown]
  - Pain [Unknown]
